FAERS Safety Report 7785550-2 (Version None)
Quarter: 2011Q3

REPORT INFORMATION
  Report Type: 
  Country: None (occurrence: None)
  Receive Date: 20110929
  Receipt Date: 20110919
  Transmission Date: 20111222
  Serious: Yes (Hospitalization, Other)
  Sender: FDA-Public Use
  Company Number: US-BAYER-201041759NA

PATIENT
  Age: 28 Year
  Sex: Female
  Weight: 107.94 kg

DRUGS (7)
  1. YASMIN [Suspect]
     Indication: ORAL CONTRACEPTION
     Dosage: UNK
     Dates: start: 20050218, end: 20090206
  2. ALBUTEROL [Concomitant]
  3. LORTAB [Concomitant]
     Dosage: UNK
     Dates: start: 20090202
  4. DROSPIRENONE AND ETHINYL ESTRADIOL [Suspect]
     Indication: ORAL CONTRACEPTION
     Dosage: UNK
     Dates: start: 20050218, end: 20090206
  5. BENADRYL [Concomitant]
  6. ZYRTEC [Concomitant]
  7. RELPAX [Concomitant]

REACTIONS (4)
  - DEEP VEIN THROMBOSIS [None]
  - PULMONARY EMBOLISM [None]
  - BILIARY DYSKINESIA [None]
  - GALLBLADDER DISORDER [None]
